FAERS Safety Report 23323434 (Version 1)
Quarter: 2023Q4

REPORT INFORMATION
  Report Type: Spontaneous
  Country: US (occurrence: US)
  Receive Date: 20231220
  Receipt Date: 20231220
  Transmission Date: 20240109
  Serious: No
  Sender: FDA-Public Use
  Company Number: US-CADILA HEALTHCARE LIMITED-US-ZYDUS-096941

PATIENT

DRUGS (1)
  1. VARDENAFIL [Suspect]
     Active Substance: VARDENAFIL HYDROCHLORIDE
     Indication: Erectile dysfunction
     Dosage: 20 MILLIGRAM, PRN
     Route: 048
     Dates: start: 20230802

REACTIONS (3)
  - Drug ineffective [Unknown]
  - Headache [None]
  - Flushing [Recovered/Resolved]

NARRATIVE: CASE EVENT DATE: 20230802
